FAERS Safety Report 6835957-2 (Version None)
Quarter: 2010Q3

REPORT INFORMATION
  Report Type: 
  Country: None (occurrence: None)
  Receive Date: 20100713
  Receipt Date: 20100706
  Transmission Date: 20110219
  Serious: Yes (Other)
  Sender: FDA-Public Use
  Company Number: A0868670A

PATIENT
  Age: 73 Year
  Sex: Male

DRUGS (5)
  1. ADVAIR DISKUS 100/50 [Suspect]
     Indication: CHRONIC OBSTRUCTIVE PULMONARY DISEASE
     Dosage: 1PUFF TWICE PER DAY
     Route: 055
     Dates: start: 20070101, end: 20090101
  2. ADVAIR DISKUS 100/50 [Suspect]
     Dosage: 2PUFF TWICE PER DAY
     Route: 055
     Dates: start: 20090101
  3. IPRATROPIUM [Suspect]
     Indication: CHRONIC OBSTRUCTIVE PULMONARY DISEASE
     Route: 065
  4. ALBUTEROL [Concomitant]
  5. SPIRIVA [Concomitant]

REACTIONS (5)
  - CATARACT [None]
  - DRY THROAT [None]
  - GLAUCOMA [None]
  - MACULAR DEGENERATION [None]
  - VISUAL ACUITY REDUCED [None]
